FAERS Safety Report 12520561 (Version 1)
Quarter: 2016Q2

REPORT INFORMATION
  Report Type: Spontaneous
  Country: US (occurrence: None)
  Receive Date: 20160630
  Receipt Date: 20160630
  Transmission Date: 20160815
  Serious: Yes (Other)
  Sender: FDA-Public Use
  Company Number: None

PATIENT
  Age: 49 Year
  Sex: Female
  Weight: 61.24 kg

DRUGS (1)
  1. REVLIMID [Suspect]
     Active Substance: LENALIDOMIDE
     Indication: NON-HODGKIN^S LYMPHOMA
     Dosage: AT BEDTIME, TAKEN BY MOUTH
     Route: 048
     Dates: start: 20160321

REACTIONS (3)
  - Gastrointestinal motility disorder [None]
  - Abdominal distension [None]
  - Dyspepsia [None]
